FAERS Safety Report 7904766-5 (Version None)
Quarter: 2011Q4

REPORT INFORMATION
  Report Type: 
  Country: None (occurrence: None)
  Receive Date: 20111109
  Receipt Date: 20111031
  Transmission Date: 20120403
  Serious: Yes (Hospitalization, Other)
  Sender: FDA-Public Use
  Company Number: US-BAYER-201031290NA

PATIENT
  Age: 17 Year
  Sex: Female
  Weight: 70.748 kg

DRUGS (8)
  1. PHENERGAN SYRUP W/CODEINE [Concomitant]
     Dosage: UNK
     Route: 048
     Dates: start: 20081101
  2. YASMIN [Suspect]
     Dosage: UNK UNK, QD
     Route: 048
     Dates: start: 20060101, end: 20090101
  3. YAZ [Suspect]
     Dosage: UNK UNK, QD
     Route: 048
     Dates: start: 20060101, end: 20090101
  4. CLARITIN [Concomitant]
  5. ALBUTEROL [Concomitant]
     Dosage: UNK UNK, PRN
     Route: 055
  6. IBUPROFEN [Concomitant]
     Dosage: UNK UNK, PRN
     Route: 048
  7. ZITHROMAX [Concomitant]
     Dosage: UNK
     Route: 048
     Dates: start: 20081101
  8. HYDROCODONE BITARTRATE [Concomitant]
     Dosage: UNK UNK, PRN
     Route: 048
     Dates: start: 20080801

REACTIONS (3)
  - DEEP VEIN THROMBOSIS [None]
  - PULMONARY INFARCTION [None]
  - PULMONARY EMBOLISM [None]
